FAERS Safety Report 25186006 (Version 1)
Quarter: 2025Q2

REPORT INFORMATION
  Report Type: Spontaneous
  Country: GB (occurrence: GB)
  Receive Date: 20250410
  Receipt Date: 20250410
  Transmission Date: 20250716
  Serious: Yes (Disabling, Other)
  Sender: ELI LILLY AND CO
  Company Number: None

PATIENT

DRUGS (10)
  1. MOUNJARO [Interacting]
     Active Substance: TIRZEPATIDE
     Indication: Product used for unknown indication
     Route: 065
  2. JARDIANCE [Interacting]
     Active Substance: EMPAGLIFLOZIN
     Indication: Product used for unknown indication
     Route: 065
  3. INDAPAMIDE [Interacting]
     Active Substance: INDAPAMIDE
     Indication: Blood pressure measurement
     Route: 065
  4. OMNITROPE [Suspect]
     Active Substance: SOMATROPIN
     Indication: Product used for unknown indication
     Route: 065
  5. CABERGOLINE [Suspect]
     Active Substance: CABERGOLINE
     Indication: Product used for unknown indication
     Route: 065
  6. TESTOSTERONE [Suspect]
     Active Substance: TESTOSTERONE
     Indication: Product used for unknown indication
     Route: 065
  7. OLMESARTAN [Suspect]
     Active Substance: OLMESARTAN
     Indication: Product used for unknown indication
     Route: 065
  8. AMLODIPINE [Suspect]
     Active Substance: AMLODIPINE BESYLATE
     Indication: Product used for unknown indication
     Route: 065
  9. LEVOTHYROXINE [Suspect]
     Active Substance: LEVOTHYROXINE
     Indication: Product used for unknown indication
     Route: 065
  10. LEVOTHYROXINE [Suspect]
     Active Substance: LEVOTHYROXINE
     Route: 065

REACTIONS (23)
  - Dehydration [Unknown]
  - Pollakiuria [Unknown]
  - Muscle fatigue [Unknown]
  - Gait inability [Unknown]
  - Sensory disturbance [Unknown]
  - Headache [Unknown]
  - Cognitive disorder [Unknown]
  - Memory impairment [Unknown]
  - Confusional state [Unknown]
  - Blood pressure increased [Unknown]
  - Fluid imbalance [Unknown]
  - Orthostatic intolerance [Unknown]
  - Autonomic nervous system imbalance [Unknown]
  - Endothelial dysfunction [Unknown]
  - N-terminal prohormone brain natriuretic peptide abnormal [Unknown]
  - Influenza like illness [Unknown]
  - Oedema peripheral [Unknown]
  - Productive cough [Unknown]
  - Eating disorder [Unknown]
  - Swelling face [Unknown]
  - Periorbital oedema [Unknown]
  - Drug interaction [Unknown]
  - Drug ineffective [Unknown]
